FAERS Safety Report 25526140 (Version 2)
Quarter: 2025Q3

REPORT INFORMATION
  Report Type: Report from Study
  Country: AR (occurrence: AR)
  Receive Date: 20250707
  Receipt Date: 20250718
  Transmission Date: 20251021
  Serious: No
  Sender: KYOWA
  Company Number: AR-KYOWAKIRIN-2025KK013237

PATIENT

DRUGS (2)
  1. CRYSVITA [Suspect]
     Active Substance: BUROSUMAB-TWZA
     Indication: Hereditary hypophosphataemic rickets
     Dosage: 40 MILLIGRAM (20 MG/ML)
     Route: 058
     Dates: start: 20240411
  2. CRYSVITA [Suspect]
     Active Substance: BUROSUMAB-TWZA
     Dosage: 40 MILLIGRAM (20 MG/ML)
     Route: 058
     Dates: start: 20250630

REACTIONS (4)
  - Tooth injury [Recovering/Resolving]
  - Pulpitis dental [Recovering/Resolving]
  - Tooth infection [Recovering/Resolving]
  - Tooth abscess [Recovering/Resolving]

NARRATIVE: CASE EVENT DATE: 20250601
